FAERS Safety Report 6671626-X (Version None)
Quarter: 2010Q2

REPORT INFORMATION
  Report Type: 
  Country: None (occurrence: None)
  Receive Date: 20100406
  Receipt Date: 20100406
  Transmission Date: 20101027
  Serious: Yes (Other)
  Sender: FDA-Public Use
  Company Number: None

PATIENT
  Sex: Female
  Weight: 72.5755 kg

DRUGS (13)
  1. LEVAQUIN [Suspect]
     Indication: PNEUMONIA
     Dosage: LEVAQUIN QD PO
     Route: 048
     Dates: start: 20100219, end: 20100228
  2. LASIX [Concomitant]
  3. SIMVASTATIN [Concomitant]
  4. DOXAZOSIN [Concomitant]
  5. VIOVAN [Concomitant]
  6. ATENOLOL [Concomitant]
  7. HYDROCHLOROTHIAZIDE [Concomitant]
  8. WARFARIN SODIUM [Concomitant]
  9. CELEBREX [Concomitant]
  10. ALBUTEROL [Concomitant]
  11. VICODIN [Concomitant]
  12. TESSALON PEARLES [Concomitant]
  13. LOVAZA [Concomitant]

REACTIONS (1)
  - TENDON RUPTURE [None]
